FAERS Safety Report 9242651 (Version 2)
Quarter: 2013Q2

REPORT INFORMATION
  Report Type: Spontaneous
  Country: GB (occurrence: GB)
  Receive Date: 20130419
  Receipt Date: 20130610
  Transmission Date: 20140414
  Serious: Yes (Other)
  Sender: FDA-Public Use
  Company Number: GB-GLAXOSMITHKLINE-B0883128A

PATIENT
  Sex: Male

DRUGS (6)
  1. VENTOLIN [Suspect]
     Indication: ASTHMA
     Route: 055
  2. LIPITOR [Concomitant]
  3. UNKNOWN DRUG [Concomitant]
  4. LANSOPRAZOLE [Concomitant]
  5. CORTISONE [Concomitant]
  6. SYMBICORT [Concomitant]

REACTIONS (3)
  - Pulmonary mycosis [Unknown]
  - Dyspnoea [Unknown]
  - Drug ineffective [Unknown]
